FAERS Safety Report 19556671 (Version 1)
Quarter: 2021Q3

REPORT INFORMATION
  Report Type: Report from Study
  Country: IT (occurrence: IT)
  Receive Date: 20210715
  Receipt Date: 20210715
  Transmission Date: 20211014
  Serious: Yes (Hospitalization)
  Sender: FDA-Public Use
  Company Number: IT-PFIZER INC-2021810691

PATIENT
  Age: 49 Year
  Sex: Female

DRUGS (5)
  1. DELTACORTENE [Suspect]
     Active Substance: PREDNISONE
     Indication: TUMOUR PAIN
     Dosage: 50 MG, 1X/DAY
     Route: 048
     Dates: start: 20210420, end: 20210522
  2. BACTRIM [Concomitant]
     Active Substance: SULFAMETHOXAZOLE\TRIMETHOPRIM
  3. BLEOMYCIN SULFATE [Suspect]
     Active Substance: BLEOMYCIN SULFATE
     Indication: FOLLICLE CENTRE LYMPHOMA, FOLLICULAR GRADE I, II, III
     Dosage: 16.4 MG AT UNKNOWN FREQUENCY AND TOTAL DOSAGE
     Route: 042
     Dates: start: 20210520, end: 20210520
  4. ACICLOVIR [Concomitant]
     Active Substance: ACYCLOVIR
  5. VINCRISTINE SULFATE. [Suspect]
     Active Substance: VINCRISTINE SULFATE
     Indication: FOLLICLE CENTRE LYMPHOMA, FOLLICULAR GRADE I, II, III
     Dosage: 2 MG AT UNKNOWN FREQUENCY AND TOTAL DOSAGE
     Route: 040
     Dates: start: 20210520, end: 20210520

REACTIONS (5)
  - Neutropenia [Recovered/Resolved]
  - Staphylococcal infection [Recovered/Resolved]
  - Chest pain [Recovered/Resolved]
  - Pyrexia [Recovered/Resolved]
  - Chills [Recovered/Resolved]

NARRATIVE: CASE EVENT DATE: 20210522
